FAERS Safety Report 10079408 (Version 1)
Quarter: 2014Q2

REPORT INFORMATION
  Report Type: Spontaneous
  Country: US (occurrence: None)
  Receive Date: 20140414
  Receipt Date: 20140414
  Transmission Date: 20141212
  Serious: Yes (Other)
  Sender: FDA-Public Use
  Company Number: None

PATIENT
  Age: 30 Year
  Sex: Female
  Weight: 117.94 kg

DRUGS (1)
  1. CULTURELLE [Suspect]
     Indication: SUPPLEMENTATION THERAPY

REACTIONS (2)
  - Affective disorder [None]
  - Insomnia [None]
